FAERS Safety Report 7305767-0 (Version None)
Quarter: 2011Q1

REPORT INFORMATION
  Report Type: 
  Country: None (occurrence: None)
  Receive Date: 20110222
  Receipt Date: 20110216
  Transmission Date: 20110831
  Serious: Yes (Other)
  Sender: FDA-Public Use
  Company Number: B0700808A

PATIENT
  Age: 31 Year
  Sex: Female

DRUGS (1)
  1. FLUNASE (JAPAN) [Suspect]
     Route: 045

REACTIONS (2)
  - RHINORRHOEA [None]
  - ASTHMA [None]
